FAERS Safety Report 5536494-8 (Version None)
Quarter: 2007Q4

REPORT INFORMATION
  Report Type: 
  Country: None (occurrence: None)
  Receive Date: 20071206
  Receipt Date: 20071017
  Transmission Date: 20080405
  Serious: Yes (Hospitalization)
  Sender: FDA-Public Use
  Company Number: US-AMGEN-QUU248428

PATIENT
  Sex: Female

DRUGS (2)
  1. ENBREL [Suspect]
     Indication: RHEUMATOID ARTHRITIS
     Route: 058
     Dates: start: 20000201
  2. HUMIRA [Concomitant]

REACTIONS (7)
  - ARTHRITIS INFECTIVE [None]
  - ASTHENIA [None]
  - BACK PAIN [None]
  - DECREASED APPETITE [None]
  - INFECTION [None]
  - PYREXIA [None]
  - RHEUMATOID ARTHRITIS [None]
